FAERS Safety Report 14179907 (Version 1)
Quarter: 2017Q4

REPORT INFORMATION
  Report Type: Spontaneous
  Country: US (occurrence: US)
  Receive Date: 20171111
  Receipt Date: 20171111
  Transmission Date: 20180321
  Serious: Yes (Other)
  Sender: FDA-Public Use
  Company Number: US-TEVA-818620ACC

PATIENT
  Sex: Female

DRUGS (1)
  1. ENOXAPARIN SODIUM. [Suspect]
     Active Substance: ENOXAPARIN SODIUM
     Indication: ANTICOAGULANT THERAPY
     Dosage: DOSE STRENGTH: 120 MG/0.8 ML

REACTIONS (5)
  - Feeling abnormal [Recovering/Resolving]
  - Dysarthria [Recovering/Resolving]
  - Dementia [Recovering/Resolving]
  - Refusal of treatment by patient [Unknown]
  - Psychotic behaviour [Recovering/Resolving]
